FAERS Safety Report 9495361 (Version 1)
Quarter: 2013Q3

REPORT INFORMATION
  Report Type: Spontaneous
  Country: FR (occurrence: FR)
  Receive Date: 20130903
  Receipt Date: 20130903
  Transmission Date: 20140515
  Serious: Yes (Hospitalization)
  Sender: FDA-Public Use
  Company Number: FR-GLAXOSMITHKLINE-B0917160A

PATIENT
  Age: 73 Year
  Sex: Male

DRUGS (5)
  1. ARIXTRA [Suspect]
     Indication: DEEP VEIN THROMBOSIS
     Dosage: 7.5MG PER DAY
     Route: 058
     Dates: start: 20130713, end: 20130716
  2. FLUINDIONE [Suspect]
     Indication: DEEP VEIN THROMBOSIS
     Route: 048
     Dates: start: 20130702, end: 20130713
  3. STAGID [Suspect]
     Indication: TYPE 2 DIABETES MELLITUS
     Dosage: 700MG THREE TIMES PER DAY
     Route: 048
  4. CIFLOX [Suspect]
     Indication: SEPSIS
     Dosage: 500MG TWICE PER DAY
     Route: 048
     Dates: start: 20130705
  5. ROCEPHINE [Concomitant]
     Indication: SEPSIS
     Dates: end: 201307

REACTIONS (4)
  - Haematoma [Recovering/Resolving]
  - Pain [Recovering/Resolving]
  - Induration [Recovering/Resolving]
  - Anaemia [Recovering/Resolving]
